FAERS Safety Report 9539023 (Version 2)
Quarter: 2013Q4

REPORT INFORMATION
  Report Type: Spontaneous
  Country: US (occurrence: US)
  Receive Date: 20130920
  Receipt Date: 20131030
  Transmission Date: 20140711
  Serious: Yes (Hospitalization)
  Sender: FDA-Public Use
  Company Number: US-JNJFOC-20130907092

PATIENT
  Age: 65 Year
  Sex: Female

DRUGS (2)
  1. STELARA [Suspect]
     Indication: PSORIASIS
     Dosage: WAS STARTED IN THE PAST 2 MONTHS
     Route: 058
     Dates: start: 20130814, end: 20130814
  2. SORIATANE [Concomitant]
     Dosage: WAS STARTED IN THE PAST 2 MONTHS
     Route: 065
     Dates: start: 2013

REACTIONS (3)
  - Angina pectoris [Recovering/Resolving]
  - Headache [Unknown]
  - Myalgia [Unknown]
